FAERS Safety Report 8909025 (Version 1)
Quarter: 2012Q4

REPORT INFORMATION
  Report Type: 
  Country: US (occurrence: US)
  Receive Date: 20121113
  Receipt Date: 20121113
  Transmission Date: 20130627
  Serious: No
  Sender: FDA-Public Use
  Company Number: US-AMGEN-USASP2012011461

PATIENT
  Age: 56 Year
  Sex: Male

DRUGS (7)
  1. ENBREL [Suspect]
     Indication: PRODUCT USED FOR UNKNOWN INDICATION
     Dosage: 50 mg, qwk
  2. FUROSEMIDE [Concomitant]
     Dosage: 20 mg, UNK
  3. VICODIN ES [Concomitant]
     Dosage: 7.5 mg, UNK
  4. TRAMADOL [Concomitant]
     Dosage: 50 mg, UNK
  5. NAPROXEN [Concomitant]
     Dosage: 375 mg, UNK
  6. PLAVIX [Concomitant]
     Dosage: 75 mg, UNK
  7. LOSARTAN POTASSIUM [Concomitant]
     Dosage: 25 mg, UNK

REACTIONS (1)
  - Viral infection [Unknown]
